FAERS Safety Report 7362208-5 (Version None)
Quarter: 2011Q1

REPORT INFORMATION
  Report Type: 
  Country: None (occurrence: None)
  Receive Date: 20110318
  Receipt Date: 20110304
  Transmission Date: 20110831
  Serious: Yes (Hospitalization, Other)
  Sender: FDA-Public Use
  Company Number: PHHY2010JP52631

PATIENT
  Sex: Male

DRUGS (9)
  1. CIBENOL [Concomitant]
     Dosage: 300 G, UNK
     Route: 048
  2. VERAPAMIL HCL [Concomitant]
     Dosage: 40 MG, UNK
     Route: 048
  3. SUNITINIB MALATE [Concomitant]
     Indication: RENAL CELL CARCINOMA
     Dosage: 50 MG, UNK
     Route: 048
     Dates: start: 20090917, end: 20100114
  4. URALYT [Concomitant]
     Dosage: 3 G, UNK
     Route: 048
  5. INTERFERON ALFA [Concomitant]
     Indication: RENAL CELL CARCINOMA
     Dosage: 3000000IU
     Dates: start: 20030117, end: 20090902
  6. AFINITOR [Suspect]
     Dosage: 5 MG, DAILY
     Route: 048
     Dates: start: 20100806
  7. AFINITOR [Suspect]
     Indication: RENAL CELL CARCINOMA
     Dosage: 10 MG DAILY
     Route: 048
     Dates: start: 20100715, end: 20100727
  8. ALOSITOL [Concomitant]
     Dosage: 100 MG, UNK
     Route: 048
  9. AMARYL [Concomitant]
     Dosage: 6 G, UNK
     Route: 048

REACTIONS (4)
  - LEUKOPENIA [None]
  - THROMBOCYTOPENIA [None]
  - NEUTROPHIL COUNT DECREASED [None]
  - BLOOD ALKALINE PHOSPHATASE INCREASED [None]
